FAERS Safety Report 21945253 (Version 1)
Quarter: 2023Q1

REPORT INFORMATION
  Report Type: Spontaneous
  Country: US (occurrence: US)
  Receive Date: 20230202
  Receipt Date: 20230202
  Transmission Date: 20230418
  Serious: Yes (Hospitalization, Other)
  Sender: FDA-Public Use
  Company Number: US-Blueprint Medicines Corporation-766

PATIENT
  Age: 69 Year
  Sex: Male

DRUGS (1)
  1. AYVAKIT [Suspect]
     Active Substance: AVAPRITINIB
     Indication: Gastrointestinal stromal tumour
     Route: 065

REACTIONS (9)
  - Pain [Unknown]
  - Blood test abnormal [Unknown]
  - Inguinal hernia [Unknown]
  - Neoplasm progression [Unknown]
  - Pigmentation disorder [Recovered/Resolved]
  - Headache [Unknown]
  - Vomiting [Unknown]
  - Nausea [Unknown]
  - Neoplasm [Unknown]

NARRATIVE: CASE EVENT DATE: 20221201
